FAERS Safety Report 5274439-9 (Version None)
Quarter: 2007Q1

REPORT INFORMATION
  Report Type: 
  Country: None (occurrence: None)
  Receive Date: 20070323
  Receipt Date: 20070312
  Transmission Date: 20070707
  Serious: Yes (Other)
  Sender: FDA-Public Use
  Company Number: US-PFIZER INC-2007019534

PATIENT
  Sex: Female

DRUGS (7)
  1. ZYVOX [Suspect]
     Indication: STAPHYLOCOCCAL INFECTION
  2. METHADONE HCL [Concomitant]
  3. POTASSIUM ACETATE [Concomitant]
  4. NASAL PREPARATIONS [Concomitant]
  5. SENNA [Concomitant]
  6. ZOLOFT [Concomitant]
  7. VANCOMYCIN [Concomitant]

REACTIONS (1)
  - SWOLLEN TONGUE [None]
